FAERS Safety Report 8157563-2 (Version None)
Quarter: 2012Q1

REPORT INFORMATION
  Report Type: 
  Country: None (occurrence: None)
  Receive Date: 20120222
  Receipt Date: 20111207
  Transmission Date: 20120608
  Serious: No
  Sender: FDA-Public Use
  Company Number: US-ASTRAZENECA-2011SE74526

PATIENT
  Sex: Female

DRUGS (12)
  1. SEROQUEL [Suspect]
     Route: 048
  2. GABAPENTIN [Concomitant]
  3. ACETAMINOPHEN AND HYDROCODONE BITARTRATE [Concomitant]
  4. VENLAFAXINE [Concomitant]
  5. SEROQUEL [Suspect]
     Route: 048
  6. METRONIDAZOLE [Concomitant]
  7. SIMVASTATIN [Concomitant]
  8. CLINDAMYCIN [Concomitant]
  9. LEVOXYL [Concomitant]
  10. SULFAMETHOXAZOLE AND TRIMETHOPRIM [Concomitant]
  11. ATENOLOL [Suspect]
     Route: 048
  12. DOCUSATE SODIUM [Concomitant]

REACTIONS (1)
  - MALAISE [None]
